FAERS Safety Report 6612528-4 (Version None)
Quarter: 2010Q1

REPORT INFORMATION
  Report Type: 
  Country: None (occurrence: None)
  Receive Date: 20100303
  Receipt Date: 20100220
  Transmission Date: 20100710
  Serious: Yes (Hospitalization)
  Sender: FDA-Public Use
  Company Number: US-PFIZER INC-2009291361

PATIENT
  Sex: Female
  Weight: 115 kg

DRUGS (2)
  1. SUNITINIB MALATE [Suspect]
     Indication: METASTATIC RENAL CELL CARCINOMA
     Dosage: 37.5 MG, 1X/DAY
     Route: 048
     Dates: start: 20091008, end: 20091026
  2. TAMIFLU [Concomitant]
     Dosage: UNK

REACTIONS (2)
  - SYNCOPE [None]
  - THROMBOCYTOPENIA [None]
